FAERS Safety Report 5449834-5 (Version None)
Quarter: 2007Q3

REPORT INFORMATION
  Report Type: 
  Country: None (occurrence: None)
  Receive Date: 20070912
  Receipt Date: 20070904
  Transmission Date: 20080115
  Serious: Yes (Other)
  Sender: FDA-Public Use
  Company Number: HQWYE002804SEP07

PATIENT
  Age: 19 Year
  Sex: Male
  Weight: 37.1 kg

DRUGS (11)
  1. TYGACIL [Suspect]
     Indication: BACTERIAL INFECTION
     Route: 042
     Dates: start: 20070611, end: 20070612
  2. TYGACIL [Suspect]
     Indication: BACTERAEMIA
  3. TYGACIL [Suspect]
     Indication: CENTRAL LINE INFECTION
  4. DIFLUCAN [Concomitant]
  5. GENTAMICIN [Concomitant]
  6. DUONEB [Concomitant]
  7. PREVACID [Concomitant]
  8. PHENOBARBITAL TAB [Concomitant]
  9. DILANTIN [Concomitant]
  10. TYLENOL (CAPLET) [Concomitant]
  11. HEPARIN [Concomitant]
     Dosage: UNKNOWN
     Route: 058

REACTIONS (1)
  - LIPASE INCREASED [None]
